FAERS Safety Report 9964091 (Version 1)
Quarter: 2014Q1

REPORT INFORMATION
  Report Type: Spontaneous
  Country: DE (occurrence: DE)
  Receive Date: 20140305
  Receipt Date: 20140305
  Transmission Date: 20141002
  Serious: Yes (Life-Threatening)
  Sender: FDA-Public Use
  Company Number: DE-GLAXOSMITHKLINE-D0083056A

PATIENT
  Age: 79 Year
  Sex: Male
  Weight: 85.1 kg

DRUGS (2)
  1. VOTRIENT [Suspect]
     Indication: RENAL CELL CARCINOMA
     Dosage: 200MG UNKNOWN
     Route: 048
     Dates: start: 20131217, end: 20140207
  2. MARCUMAR [Concomitant]
     Indication: ATRIAL FIBRILLATION
     Route: 065

REACTIONS (1)
  - Cardiac failure [Not Recovered/Not Resolved]
